FAERS Safety Report 6676899-5 (Version None)
Quarter: 2010Q2

REPORT INFORMATION
  Report Type: 
  Country: None (occurrence: None)
  Receive Date: 20100412
  Receipt Date: 20100401
  Transmission Date: 20101027
  Serious: Yes (Other)
  Sender: FDA-Public Use
  Company Number: US-SANOFI-AVENTIS-2010SA010862

PATIENT
  Age: 50 Year
  Sex: Female

DRUGS (2)
  1. SOLOSTAR [Suspect]
     Dosage: PRODUCT STARTED ONE OR MORE YEARS AGO
  2. LANTUS [Suspect]
     Dosage: PRODUCT STARTED ONE OR MORE YEARS AGO DOSE:44 UNIT(S)
     Route: 058

REACTIONS (2)
  - BLOOD GLUCOSE INCREASED [None]
  - DEVICE MALFUNCTION [None]
